FAERS Safety Report 18177881 (Version 2)
Quarter: 2021Q4

REPORT INFORMATION
  Report Type: Report from Study
  Country: US (occurrence: US)
  Receive Date: 20200820
  Receipt Date: 20211102
  Transmission Date: 20220303
  Serious: Yes (Other)
  Sender: FDA-Public Use
  Company Number: US-JAZZ-2020-US-008422

PATIENT
  Sex: Female

DRUGS (7)
  1. XYREM [Suspect]
     Active Substance: SODIUM OXYBATE
     Indication: Narcolepsy
     Dosage: 2.25 GRAM, BID
     Route: 048
     Dates: start: 20200627, end: 20200629
  2. XYREM [Suspect]
     Active Substance: SODIUM OXYBATE
     Indication: Cataplexy
     Dosage: 3 GRAM, BID
     Route: 048
     Dates: start: 20200630, end: 20200701
  3. XYREM [Suspect]
     Active Substance: SODIUM OXYBATE
     Dosage: 4.5 GRAM, BID
     Route: 048
     Dates: start: 20200714, end: 202007
  4. XYREM [Suspect]
     Active Substance: SODIUM OXYBATE
     Dosage: 3.75 GRAM, BID
     Route: 048
     Dates: start: 202007, end: 202007
  5. XYREM [Suspect]
     Active Substance: SODIUM OXYBATE
     Dosage: 4.5 GRAM, BID
     Route: 048
     Dates: start: 202007
  6. VERAPAMIL [Suspect]
     Active Substance: VERAPAMIL HYDROCHLORIDE
     Indication: Blood pressure measurement
  7. LISINOPRIL AND HYDROCHLOROTHIAZIDE [Suspect]
     Active Substance: HYDROCHLOROTHIAZIDE\LISINOPRIL
     Indication: Blood pressure measurement
     Dosage: UNKNOWN DOSE
     Dates: start: 20200717

REACTIONS (15)
  - Blood pressure increased [Recovered/Resolved]
  - Palpitations [Recovering/Resolving]
  - Dyskinesia [Recovering/Resolving]
  - Pallor [Recovering/Resolving]
  - Gait disturbance [Recovering/Resolving]
  - Disturbance in attention [Unknown]
  - Heart rate increased [Unknown]
  - Nausea [Recovered/Resolved]
  - Dizziness [Recovered/Resolved]
  - Anxiety [Unknown]
  - Enuresis [Not Recovered/Not Resolved]
  - Tooth disorder [Not Recovered/Not Resolved]
  - Pre-existing condition improved [Unknown]
  - Therapeutic response unexpected [Unknown]
  - Wrong technique in product usage process [Unknown]

NARRATIVE: CASE EVENT DATE: 20200101
